FAERS Safety Report 16918632 (Version 1)
Quarter: 2019Q4

REPORT INFORMATION
  Report Type: Report from Study
  Country: GB (occurrence: GB)
  Receive Date: 20191015
  Receipt Date: 20191015
  Transmission Date: 20200122
  Serious: Yes (Hospitalization)
  Sender: FDA-Public Use
  Company Number: GB-MYLANLABS-2019M1095564

PATIENT
  Age: 33 Year
  Sex: Female
  Weight: 66 kg

DRUGS (23)
  1. TOCOPHERYL ACETATE-D-ALPHA [Suspect]
     Active Substance: .ALPHA.-TOCOPHEROL ACETATE, D-
     Indication: PANCREATIC FAILURE
     Dosage: 134 MILLIGRAM, QD (EVERY MORNING AT 6 A.M.)
     Route: 048
  2. AZITHROMYCIN ANHYDROUS. [Suspect]
     Active Substance: AZITHROMYCIN ANHYDROUS
     Indication: PSEUDOMONAS INFECTION
     Dosage: 250 MILLIGRAM, QD (EACH MORNING 28 DAYS)
     Route: 048
  3. CREON [Suspect]
     Active Substance: PANCRELIPASE AMYLASE\PANCRELIPASE LIPASE\PANCRELIPASE PROTEASE
     Indication: PANCREATIC FAILURE
     Dosage: 10000 MILLIGRAM (5 CAPSULE THREE TIMES A DAY WITH FOOD 07:00, 12:00, 17:00)
     Route: 048
  4. COLECALCIFEROL [Suspect]
     Active Substance: CHOLECALCIFEROL
     Indication: PANCREATIC FAILURE
     Dosage: 800 DOSAGE FORM, QD (CAPSULES/TABLETS, 800 UNIT EACH MORNING 28 DAYS)
     Route: 048
  5. ZOPICLONE [Suspect]
     Active Substance: ZOPICLONE
     Indication: INSOMNIA
     Dosage: 3.75 MILLIGRAM, QD (EACH NIGHT 28 DAYS)
     Route: 048
  6. VITAMIN A + D                      /00343801/ [Suspect]
     Active Substance: ERGOCALCIFEROL\RETINOL
     Indication: PANCREATIC FAILURE
     Dosage: 2 DOSAGE FORM, QD (2 CAPSULES EVERY MORNING AT 6 A.M.)
     Route: 048
  7. SODIUM CHLORIDE. [Suspect]
     Active Substance: SODIUM CHLORIDE
     Indication: PRODUCT USED FOR UNKNOWN INDICATION
     Dosage: 4 MILLILITER, QD (4 ML EVERY MORNING AT 6 A.M., MUCOLYTIC)
     Route: 065
  8. CICLESONIDE [Suspect]
     Active Substance: CICLESONIDE
     Indication: ASTHMA
     Dosage: 160 MICROGRAM, QD (EACH MORNING) (INHALANT)
     Route: 065
  9. DORNASE ALFA. [Suspect]
     Active Substance: DORNASE ALFA
     Indication: PRODUCT USED FOR UNKNOWN INDICATION
     Dosage: 2.5 MILLIGRAM, QD (2.5 MG EACH MORNING 2~ DAYS, MUCOLYTIC)
     Route: 065
  10. MONTELUKAST [Suspect]
     Active Substance: MONTELUKAST SODIUM
     Indication: ASTHMA
     Dosage: 10 MILLIGRAM, QD (EACH NIGHT 28 DAYS)
     Route: 048
  11. DOCUSATE SODIUM. [Suspect]
     Active Substance: DOCUSATE SODIUM
     Indication: CONSTIPATION
     Dosage: 200 MILLIGRAM, QD (200 MILLIGRAM DAILY)
     Route: 048
  12. FLUTICASONE. [Suspect]
     Active Substance: FLUTICASONE
     Indication: RHINITIS
     Dosage: 27.5 MICROGRAM, QD (EACH MORNING)
     Route: 065
  13. COLOBREATHE [Suspect]
     Active Substance: COLISTIMETHATE SODIUM
     Indication: PSEUDOMONAS INFECTION
     Dosage: UNK
  14. SODIUM CHLORIDE. [Suspect]
     Active Substance: SODIUM CHLORIDE
     Indication: HYPONATRAEMIA
     Dosage: 600 MILLIGRAM, TID (1800 MG THREE TIMES A DAY)
     Route: 048
  15. CARBOCISTEINE [Suspect]
     Active Substance: CARBOCYSTEINE
     Indication: PRODUCT USED FOR UNKNOWN INDICATION
     Dosage: 750 MG THREE TIMES A DAY, MUCOLYTIC
     Route: 048
  16. OMEPRAZOLE. [Suspect]
     Active Substance: OMEPRAZOLE
     Indication: GASTROOESOPHAGEAL REFLUX DISEASE
     Dosage: 40 MILLIGRAM
     Route: 048
  17. PARACETAMOL [Suspect]
     Active Substance: ACETAMINOPHEN
     Indication: PYREXIA
     Dosage: UNK
  18. MULTIVITAMINS                      /00116001/ [Suspect]
     Active Substance: VITAMINS
     Indication: PANCREATIC FAILURE
     Dosage: 1 DOSAGE FORM, QD (TABLETS/CAPSULES - 1 TABLET EACH MORNING 28 DAYS)
     Route: 048
  19. COLOBREATHE [Suspect]
     Active Substance: COLISTIMETHATE SODIUM
     Indication: CYSTIC FIBROSIS
     Dosage: 2 DOSAGE FORM, QD (1,662,500 IU; TWICE DAILY.)
     Route: 055
     Dates: start: 20140523, end: 20190226
  20. SYMBICORT [Suspect]
     Active Substance: BUDESONIDE\FORMOTEROL FUMARATE DIHYDRATE
     Indication: ASTHMA
     Dosage: BUDESONIDE 200MCG I FORMETROL6MCG, 2 PUFF(S) TWICE DAILY MORNING
     Route: 065
  21. PARACETAMOL [Suspect]
     Active Substance: ACETAMINOPHEN
     Indication: PAIN
     Dosage: MAX 4G DAILY 1000 MG FOUR TIMES A DAY PRN 7 DAYS
     Route: 048
  22. SALBUTAMOL [Suspect]
     Active Substance: ALBUTEROL
     Indication: PRODUCT USED FOR UNKNOWN INDICATION
     Dosage: 100 MICROGRAM, PRN (2 PUFF(S) PRN 28 DAYS) (INHALANT)
     Route: 065
  23. MACROGOL [Suspect]
     Active Substance: POLYETHYLENE GLYCOLS
     Indication: DISTAL INTESTINAL OBSTRUCTION SYNDROME
     Dosage: 1SACHET TWICE DAILY AT LOAM AND 10PM 10 DAYS
     Route: 048

REACTIONS (9)
  - Hypersomnia [Recovered/Resolved]
  - Cough [Recovered/Resolved]
  - Decreased appetite [Recovered/Resolved]
  - Condition aggravated [Recovered/Resolved]
  - Influenza [Recovered/Resolved]
  - Dry throat [Recovered/Resolved]
  - Bone pain [Recovered/Resolved]
  - Chest discomfort [Recovered/Resolved]
  - Nasopharyngitis [Recovered/Resolved]

NARRATIVE: CASE EVENT DATE: 20190222
